FAERS Safety Report 17664719 (Version 2)
Quarter: 2020Q2

REPORT INFORMATION
  Report Type: Spontaneous
  Country: US (occurrence: US)
  Receive Date: 20200414
  Receipt Date: 20200415
  Transmission Date: 20200713
  Serious: Yes (Other)
  Sender: FDA-Public Use
  Company Number: US-PFIZER INC-2020147428

PATIENT
  Age: 77 Year
  Sex: Male

DRUGS (2)
  1. IBUPROFEN. [Suspect]
     Active Substance: IBUPROFEN
     Indication: PERICARDITIS
     Dosage: UNK
  2. COLCHICINE. [Suspect]
     Active Substance: COLCHICINE
     Indication: PERICARDITIS
     Dosage: UNK

REACTIONS (1)
  - Acute kidney injury [Unknown]
